FAERS Safety Report 19472355 (Version 1)
Quarter: 2021Q2

REPORT INFORMATION
  Report Type: Report from Study
  Country: JP (occurrence: JP)
  Receive Date: 20210629
  Receipt Date: 20210629
  Transmission Date: 20210717
  Serious: Yes (Other)
  Sender: FDA-Public Use
  Company Number: JP-PFIZER INC-2021757170

PATIENT

DRUGS (5)
  1. ACETAZOLAMIDE. [Concomitant]
     Active Substance: ACETAZOLAMIDE
     Dosage: EVERY 12 H DURING HD?MTX
  2. METHOTREXATE SODIUM. [Suspect]
     Active Substance: METHOTREXATE SODIUM
     Dosage: 5.0 G/M2
     Route: 041
  3. NAHCO3 [Concomitant]
     Active Substance: SODIUM BICARBONATE
     Dosage: 32 MEQ/L
     Route: 042
  4. GLUCOSE [Concomitant]
     Active Substance: DEXTROSE
     Dosage: 4.3 %
     Route: 042
  5. METHOTREXATE SODIUM. [Suspect]
     Active Substance: METHOTREXATE SODIUM
     Dosage: 3.0 G/M2
     Route: 041

REACTIONS (3)
  - Stomatitis [Unknown]
  - Myelosuppression [Unknown]
  - Drug clearance decreased [Unknown]
